FAERS Safety Report 5016106-2 (Version None)
Quarter: 2006Q2

REPORT INFORMATION
  Report Type: 
  Country: None (occurrence: None)
  Receive Date: 20060414
  Receipt Date: 20060306
  Transmission Date: 20061013
  Serious: No
  Sender: FDA-Public Use
  Company Number: 2006SP001095

PATIENT
  Age: 36 Year
  Sex: Female
  Weight: 50.8029 kg

DRUGS (1)
  1. LUNESTA [Suspect]
     Indication: INSOMNIA
     Dosage: 2 MG HS ORAL
     Route: 048
     Dates: start: 20060118, end: 20060201

REACTIONS (2)
  - DYSGEUSIA [None]
  - VISION BLURRED [None]
